FAERS Safety Report 6021878-4 (Version None)
Quarter: 2008Q4

REPORT INFORMATION
  Report Type: 
  Country: None (occurrence: None)
  Receive Date: 20081222
  Receipt Date: 20081017
  Transmission Date: 20090506
  Serious: No
  Sender: FDA-Public Use
  Company Number: ALL1-2008-03041

PATIENT
  Age: 29 Year
  Sex: Female

DRUGS (1)
  1. VYVANSE [Suspect]
     Dosage: 20 MG, 1X/DAY:QD ORAL
     Route: 048

REACTIONS (1)
  - DRUG INEFFECTIVE [None]
